FAERS Safety Report 14817685 (Version 3)
Quarter: 2018Q2

REPORT INFORMATION
  Report Type: Spontaneous
  Country: US (occurrence: US)
  Receive Date: 20180427
  Receipt Date: 20180518
  Transmission Date: 20180711
  Serious: No
  Sender: FDA-Public Use
  Company Number: US-TEVA-2018-US-885448

PATIENT
  Age: 60 Year
  Sex: Female

DRUGS (2)
  1. FENTANYL. [Suspect]
     Active Substance: FENTANYL
     Route: 062
  2. FENTANYL. [Suspect]
     Active Substance: FENTANYL
     Indication: PAIN
     Route: 062
     Dates: end: 201802

REACTIONS (10)
  - Malaise [Unknown]
  - Vomiting [Unknown]
  - Withdrawal syndrome [Unknown]
  - Product measured potency issue [Unknown]
  - Asthenia [Unknown]
  - Dehydration [Unknown]
  - Product quality issue [Unknown]
  - Device issue [Unknown]
  - Nausea [Unknown]
  - Diarrhoea [Unknown]

NARRATIVE: CASE EVENT DATE: 20180330
